FAERS Safety Report 9820085 (Version 1)
Quarter: 2013Q4

REPORT INFORMATION
  Report Type: Spontaneous
  Country: US (occurrence: None)
  Receive Date: 20131223
  Receipt Date: 20131223
  Transmission Date: 20140711
  Serious: No
  Sender: FDA-Public Use
  Company Number: 221298

PATIENT
  Age: 62 Year
  Sex: Male

DRUGS (5)
  1. PICATO [Suspect]
     Indication: ACTINIC KERATOSIS
     Dosage: (DAILY FOR THREE DAYS), TOPICAL
     Route: 061
     Dates: start: 20130409, end: 20130411
  2. COCYRS (COLCHICINE) (0.06 MG) [Concomitant]
  3. ALLOPURINOL (ALLOPURINOL)  (100 MG) [Concomitant]
  4. PRAVASTATIN (PRAVASTATIN) (40 MG) [Concomitant]
  5. HYDROCHLOROTHIAZIDE (HYDROCHLOROTHIAZIDE) (25 MG) [Concomitant]

REACTIONS (3)
  - Application site paraesthesia [None]
  - Application site swelling [None]
  - Drug administered at inappropriate site [None]
